FAERS Safety Report 8762433 (Version 3)
Quarter: 2012Q4

REPORT INFORMATION
  Report Type: 
  Country: US (occurrence: US)
  Receive Date: 20120830
  Receipt Date: 20121123
  Transmission Date: 20130627
  Serious: No
  Sender: FDA-Public Use
  Company Number: US-PFIZER INC-2012210185

PATIENT
  Sex: Female

DRUGS (1)
  1. PREMARIN [Suspect]
     Dosage: 0.625 mg, UNK
     Route: 067

REACTIONS (3)
  - Product quality issue [Unknown]
  - Frustration [Unknown]
  - Emotional disorder [Unknown]
